APPROVED DRUG PRODUCT: BENAZEPRIL HYDROCHLORIDE
Active Ingredient: BENAZEPRIL HYDROCHLORIDE
Strength: 40MG
Dosage Form/Route: TABLET;ORAL
Application: A077128 | Product #004 | TE Code: AB
Applicant: COREPHARMA LLC
Approved: Mar 8, 2006 | RLD: No | RS: No | Type: RX